FAERS Safety Report 6688773-9 (Version None)
Quarter: 2010Q2

REPORT INFORMATION
  Report Type: 
  Country: None (occurrence: None)
  Receive Date: 20100420
  Receipt Date: 20100409
  Transmission Date: 20101027
  Serious: Yes (Death)
  Sender: FDA-Public Use
  Company Number: DE-CEPHALON-2010002095

PATIENT
  Sex: Male
  Weight: 60 kg

DRUGS (4)
  1. EFFENTORA [Suspect]
     Indication: BREAKTHROUGH PAIN
     Route: 002
     Dates: start: 20100401, end: 20100408
  2. MORPHINE [Concomitant]
     Indication: BREAKTHROUGH PAIN
     Dates: start: 20100317, end: 20100330
  3. MORPHINE [Concomitant]
     Dates: start: 20100330, end: 20100409
  4. TAVOR [Concomitant]
     Indication: INSOMNIA
     Dates: start: 20100315, end: 20100408

REACTIONS (2)
  - CARDIAC FAILURE [None]
  - NEOPLASM MALIGNANT [None]
